FAERS Safety Report 6102939-8 (Version None)
Quarter: 2009Q1

REPORT INFORMATION
  Report Type: 
  Country: None (occurrence: None)
  Receive Date: 20090305
  Receipt Date: 20090225
  Transmission Date: 20090719
  Serious: Yes (Hospitalization)
  Sender: FDA-Public Use
  Company Number: US-WYE-H08347509

PATIENT
  Age: 73 Year
  Sex: Female
  Weight: 65.83 kg

DRUGS (2)
  1. CHILDREN'S DIMETAPP COLD AND COUGH [Suspect]
     Indication: COUGH
     Dosage: 2 TEASPOONS X 1
     Route: 048
     Dates: start: 20090217, end: 20090217
  2. CHILDREN'S DIMETAPP COLD AND COUGH [Suspect]
     Indication: NASOPHARYNGITIS

REACTIONS (2)
  - BRONCHOSPASM [None]
  - DYSPNOEA [None]
